FAERS Safety Report 6582223-9 (Version None)
Quarter: 2010Q1

REPORT INFORMATION
  Report Type: 
  Country: None (occurrence: None)
  Receive Date: 20100212
  Receipt Date: 20100212
  Transmission Date: 20100710
  Serious: No
  Sender: FDA-Public Use
  Company Number: None

PATIENT
  Age: 70 Year
  Sex: Male
  Weight: 78.9 kg

DRUGS (1)
  1. CODEINE/GUAIFENESIN [Suspect]
     Indication: UPPER RESPIRATORY TRACT INFECTION
     Dosage: 10 ML PRN PO
     Route: 048
     Dates: start: 20091016, end: 20091019

REACTIONS (5)
  - ERYTHEMA [None]
  - FEELING HOT [None]
  - LIP SWELLING [None]
  - PRURITUS [None]
  - URTICARIA [None]
